FAERS Safety Report 8392567-6 (Version None)
Quarter: 2012Q2

REPORT INFORMATION
  Report Type: 
  Country: None (occurrence: None)
  Receive Date: 20120529
  Receipt Date: 20120522
  Transmission Date: 20120825
  Serious: Yes (Hospitalization)
  Sender: FDA-Public Use
  Company Number: US-MERCK-1205USA00235

PATIENT
  Age: 83 Year
  Sex: Female

DRUGS (6)
  1. COZAAR [Suspect]
     Route: 048
     Dates: start: 20110101
  2. DIOVAN [Concomitant]
     Route: 065
  3. NADOLOL [Concomitant]
     Route: 065
  4. COZAAR [Suspect]
     Indication: HYPERTENSION
     Route: 048
     Dates: start: 20040101
  5. LIPITOR [Concomitant]
     Route: 065
  6. COZAAR [Suspect]
     Route: 048

REACTIONS (2)
  - BLOOD PRESSURE INADEQUATELY CONTROLLED [None]
  - ADVERSE EVENT [None]
